FAERS Safety Report 18462435 (Version 1)
Quarter: 2020Q4

REPORT INFORMATION
  Report Type: Spontaneous
  Country: US (occurrence: US)
  Receive Date: 20201104
  Receipt Date: 20201104
  Transmission Date: 20210114
  Serious: No
  Sender: FDA-Public Use
  Company Number: US-CELGENEUS-USA-20201007958

PATIENT
  Age: 74 Year
  Sex: Female
  Weight: 79 kg

DRUGS (13)
  1. ATORVASTATIN CALCIUM. [Concomitant]
     Active Substance: ATORVASTATIN CALCIUM
     Indication: HYPERLIPIDAEMIA
     Route: 065
  2. CALCIUM CITRATE +D3 [Concomitant]
     Indication: VITAMIN SUPPLEMENTATION
     Dosage: 15-250 MG-UN
     Route: 065
  3. OCUVITE-LUTEIN [Concomitant]
     Indication: SEASONAL ALLERGY
     Route: 065
  4. VITAMIN B COMPLEX-C [Concomitant]
     Indication: VITAMIN SUPPLEMENTATION
     Route: 065
  5. CLOPIDOGREL BISULFATE. [Concomitant]
     Active Substance: CLOPIDOGREL BISULFATE
     Indication: ANTICOAGULANT THERAPY
     Route: 065
  6. MOVE FREE JOINT HEALTH ADVANCE [Concomitant]
     Indication: ROUTINE HEALTH MAINTENANCE
     Route: 065
  7. REVLIMID [Suspect]
     Active Substance: LENALIDOMIDE
     Indication: PLASMA CELL MYELOMA
     Dosage: 15 MILLIGRAM
     Route: 048
     Dates: start: 20200909
  8. MELATONIN [Concomitant]
     Active Substance: MELATONIN
     Indication: VITAMIN SUPPLEMENTATION
     Route: 065
  9. THERAGRAN-M [Concomitant]
     Active Substance: VITAMINS
     Indication: VITAMIN SUPPLEMENTATION
     Route: 065
  10. PROBICHEW [Concomitant]
     Indication: VITAMIN SUPPLEMENTATION
     Route: 065
  11. CETIRIZINE HCL [Concomitant]
     Active Substance: CETIRIZINE HYDROCHLORIDE
     Indication: SEASONAL ALLERGY
     Route: 065
  12. FOSAMAX [Concomitant]
     Active Substance: ALENDRONATE SODIUM
     Indication: ROUTINE HEALTH MAINTENANCE
     Route: 065
  13. MILK THISTLE [Concomitant]
     Active Substance: DIETARY SUPPLEMENT\HERBALS\MILK THISTLE
     Indication: VITAMIN SUPPLEMENTATION
     Route: 065

REACTIONS (4)
  - Constipation [Not Recovered/Not Resolved]
  - Fatigue [Not Recovered/Not Resolved]
  - Pyrexia [Not Recovered/Not Resolved]
  - Influenza like illness [Not Recovered/Not Resolved]

NARRATIVE: CASE EVENT DATE: 20201001
